FAERS Safety Report 9785328 (Version 2)
Quarter: 2013Q4

REPORT INFORMATION
  Report Type: Spontaneous
  Country: US (occurrence: US)
  Receive Date: 20131227
  Receipt Date: 20131227
  Transmission Date: 20140711
  Serious: No
  Sender: FDA-Public Use
  Company Number: US-MYLANLABS-2013S1016497

PATIENT
  Age: 36 Year
  Sex: Female
  Weight: 77.11 kg

DRUGS (2)
  1. CITALOPRAM [Suspect]
     Route: 048
     Dates: start: 201302
  2. BUPROPION [Concomitant]

REACTIONS (1)
  - Drug screen false positive [Not Recovered/Not Resolved]
